FAERS Safety Report 22327294 (Version 1)
Quarter: 2023Q2

REPORT INFORMATION
  Report Type: Spontaneous
  Country: US (occurrence: US)
  Receive Date: 20230516
  Receipt Date: 20230516
  Transmission Date: 20230722
  Serious: No
  Sender: FDA-Public Use
  Company Number: US-RADIUS HEALTH INC.-2023US000236

PATIENT
  Sex: Female

DRUGS (1)
  1. TYMLOS [Suspect]
     Active Substance: ABALOPARATIDE
     Indication: Hyperthyroidism
     Dosage: 80 MICROGRAM, QD
     Route: 058
     Dates: start: 202212

REACTIONS (4)
  - Brain fog [Unknown]
  - Dizziness [Unknown]
  - Nausea [Unknown]
  - Product use in unapproved indication [Unknown]
